FAERS Safety Report 4667542-5 (Version None)
Quarter: 2005Q2

REPORT INFORMATION
  Report Type: 
  Country: None (occurrence: None)
  Receive Date: 20050428
  Receipt Date: 20041127
  Transmission Date: 20051028
  Serious: Yes (Disabling)
  Sender: FDA-Public Use
  Company Number: 2004065722

PATIENT
  Age: 79 Year
  Sex: Female
  Weight: 54.8852 kg

DRUGS (6)
  1. ZITHROMAX [Suspect]
     Indication: PYREXIA
     Dosage: 500 MG (250 MG, 1 IN 1 D), ORAL
     Route: 048
     Dates: start: 20040901
  2. DILTIAZEM [Concomitant]
  3. POTASSIUM ACETATE [Concomitant]
  4. VITAMINS (VITAMINS) [Concomitant]
  5. ERGOCALCIFEROL (ERGOCALCIFEROL) [Concomitant]
  6. CALCIUM (CALCIUM) [Concomitant]

REACTIONS (2)
  - DEAFNESS [None]
  - TINNITUS [None]
